FAERS Safety Report 6129731-2 (Version None)
Quarter: 2009Q1

REPORT INFORMATION
  Report Type: 
  Country: None (occurrence: None)
  Receive Date: 20090324
  Receipt Date: 20090318
  Transmission Date: 20090719
  Serious: Yes (Other)
  Sender: FDA-Public Use
  Company Number: A0774047A

PATIENT

DRUGS (1)
  1. AVAMYS [Suspect]
     Indication: SINUSITIS
     Route: 065

REACTIONS (4)
  - AGEUSIA [None]
  - ANOSMIA [None]
  - EATING DISORDER [None]
  - WEIGHT DECREASED [None]
